FAERS Safety Report 20712921 (Version 2)
Quarter: 2022Q3

REPORT INFORMATION
  Report Type: Report from Study
  Country: US (occurrence: US)
  Receive Date: 20220415
  Receipt Date: 20220703
  Transmission Date: 20221027
  Serious: Yes (Other)
  Sender: FDA-Public Use
  Company Number: US-CELGENE-USA-20211208949

PATIENT
  Age: 67 Year
  Sex: Female
  Weight: 63.503 kg

DRUGS (8)
  1. REVLIMID [Suspect]
     Active Substance: LENALIDOMIDE
     Indication: Plasma cell myeloma
     Dosage: 25 MILLIGRAM
     Route: 048
     Dates: start: 201205
  2. REVLIMID [Suspect]
     Active Substance: LENALIDOMIDE
     Dosage: 10 MILLIGRAM
     Route: 048
     Dates: start: 201308
  3. REVLIMID [Suspect]
     Active Substance: LENALIDOMIDE
     Dosage: 15 MILLIGRAM
     Route: 048
     Dates: start: 201311
  4. REVLIMID [Suspect]
     Active Substance: LENALIDOMIDE
     Dosage: 5 MILLIGRAM
     Route: 048
     Dates: start: 201406
  5. REVLIMID [Suspect]
     Active Substance: LENALIDOMIDE
     Dosage: 28/BTL, DAILY
     Route: 048
  6. REVLIMID [Suspect]
     Active Substance: LENALIDOMIDE
     Route: 048
  7. ZOMETA [Concomitant]
     Active Substance: ZOLEDRONIC ACID
     Indication: Product used for unknown indication
     Dosage: FREQUENCY TEXT: NOT PROVIDED
     Route: 065
  8. ACETAMINOPHEN\HYDROCODONE [Concomitant]
     Active Substance: ACETAMINOPHEN\HYDROCODONE
     Indication: Pain
     Dosage: FREQUENCY TEXT: AS NEEDED?5-325 MG
     Route: 048

REACTIONS (1)
  - Breast cancer [Recovering/Resolving]

NARRATIVE: CASE EVENT DATE: 20211101
